FAERS Safety Report 9171501 (Version 7)
Quarter: 2015Q1

REPORT INFORMATION
  Report Type: Report from Study
  Country: NO (occurrence: NO)
  Receive Date: 20130319
  Receipt Date: 20150325
  Transmission Date: 20150721
  Serious: Yes (Hospitalization)
  Sender: FDA-Public Use
  Company Number: NO-ROCHE-1185725

PATIENT
  Age: 53 Year
  Sex: Female
  Weight: 72.9 kg

DRUGS (6)
  1. VEMURAFENIB [Suspect]
     Active Substance: VEMURAFENIB
     Indication: METASTATIC MALIGNANT MELANOMA
     Dosage: LAST DOSE PRIOR TO SAE: 23/JAN/2013
     Route: 048
     Dates: start: 20121030, end: 20130124
  2. VEMURAFENIB [Suspect]
     Active Substance: VEMURAFENIB
     Route: 048
     Dates: start: 20130314
  3. AFIPRAN [Concomitant]
     Route: 065
     Dates: start: 20130125, end: 20130212
  4. SPERSADEX [Concomitant]
     Dosage: 1-2 DROPS/ MG/ML
     Route: 065
     Dates: start: 19850630
  5. NOBLIGAN RETARD [Concomitant]
     Route: 065
     Dates: start: 20130126, end: 20130128
  6. NOBLIGAN RETARD [Concomitant]
     Route: 065
     Dates: start: 20130129

REACTIONS (1)
  - Pericarditis [Recovered/Resolved]

NARRATIVE: CASE EVENT DATE: 20130124
